FAERS Safety Report 13243112 (Version 1)
Quarter: 2017Q1

REPORT INFORMATION
  Report Type: Spontaneous
  Country: ES (occurrence: ES)
  Receive Date: 20170217
  Receipt Date: 20170217
  Transmission Date: 20170428
  Serious: Yes (Other)
  Sender: FDA-Public Use
  Company Number: ES-TEVA-738969ISR

PATIENT
  Age: 55 Year
  Sex: Female
  Weight: 76 kg

DRUGS (1)
  1. PACLITAXEL TEVA 6MG/ML CONCETRADO PARA SOLUCION PARA PERFUSION EFG [Suspect]
     Active Substance: PACLITAXEL
     Indication: LUNG NEOPLASM MALIGNANT
     Route: 065
     Dates: start: 20170116

REACTIONS (1)
  - Erythema [Recovered/Resolved]

NARRATIVE: CASE EVENT DATE: 20170116
